FAERS Safety Report 23747884 (Version 1)
Quarter: 2024Q2

REPORT INFORMATION
  Report Type: Spontaneous
  Country: US (occurrence: US)
  Receive Date: 20240416
  Receipt Date: 20240416
  Transmission Date: 20240715
  Serious: Yes (Other)
  Sender: FDA-Public Use
  Company Number: US-PFIZER INC-202400085258

PATIENT

DRUGS (2)
  1. FENTANYL CITRATE [Suspect]
     Active Substance: FENTANYL CITRATE
     Indication: Pain
     Dosage: DOUBLE THE DOSE
  2. FENTANYL CITRATE [Suspect]
     Active Substance: FENTANYL CITRATE
     Indication: Sedation
     Dosage: 50 UG (HALF THAT DOSE)

REACTIONS (3)
  - Overdose [Unknown]
  - Drug level above therapeutic [Unknown]
  - Miosis [Unknown]

NARRATIVE: CASE EVENT DATE: 20240101
